FAERS Safety Report 13488386 (Version 1)
Quarter: 2017Q2

REPORT INFORMATION
  Report Type: Spontaneous
  Country: US (occurrence: US)
  Receive Date: 20170426
  Receipt Date: 20170426
  Transmission Date: 20170830
  Serious: Yes (Hospitalization)
  Sender: FDA-Public Use
  Company Number: None

PATIENT
  Age: 68 Year
  Sex: Female

DRUGS (8)
  1. TACROLIMUS 0.5MG [Suspect]
     Active Substance: TACROLIMUS
     Indication: HEART TRANSPLANT
     Dosage: EVERY MORNING
     Route: 048
     Dates: start: 20150612
  2. ZYRTEC [Concomitant]
     Active Substance: CETIRIZINE HYDROCHLORIDE
  3. VALGANCICLOVIR. [Concomitant]
     Active Substance: VALGANCICLOVIR
  4. SODIUM CITRATE. [Concomitant]
     Active Substance: SODIUM CITRATE
  5. TACROLIMUS. [Concomitant]
     Active Substance: TACROLIMUS
  6. MAGNESIUM [Concomitant]
     Active Substance: MAGNESIUM
  7. TACROLIMUS 1MG [Suspect]
     Active Substance: TACROLIMUS
     Indication: HEART TRANSPLANT
     Route: 048
     Dates: start: 20150612
  8. MYCOPHENOLIC 360MG TAB [Suspect]
     Active Substance: MYCOPHENOLIC ACID
     Indication: HEART TRANSPLANT
     Route: 048
     Dates: start: 20150612

REACTIONS (2)
  - Pancreatolithiasis [None]
  - Nervousness [None]

NARRATIVE: CASE EVENT DATE: 201704
